FAERS Safety Report 8010340-5 (Version None)
Quarter: 2011Q4

REPORT INFORMATION
  Report Type: 
  Country: None (occurrence: None)
  Receive Date: 20111228
  Receipt Date: 20111222
  Transmission Date: 20120403
  Serious: Yes (Death, Hospitalization)
  Sender: FDA-Public Use
  Company Number: NL-ASTELLAS-2011US008715

PATIENT
  Sex: Male
  Weight: 85 kg

DRUGS (2)
  1. TARCEVA [Suspect]
     Dosage: 300 MG, UID/QD
     Route: 048
     Dates: start: 20101101
  2. TARCEVA [Suspect]
     Indication: LUNG ADENOCARCINOMA METASTATIC
     Dosage: 150 MG, UID/QD
     Route: 048
     Dates: start: 20100903, end: 20101101

REACTIONS (4)
  - DEATH [None]
  - OVERDOSE [None]
  - CEREBRAL INFARCTION [None]
  - DISEASE PROGRESSION [None]
